FAERS Safety Report 5228919-2 (Version None)
Quarter: 2007Q1

REPORT INFORMATION
  Report Type: 
  Country: None (occurrence: None)
  Receive Date: 20070205
  Receipt Date: 20070130
  Transmission Date: 20070707
  Serious: Yes (Other)
  Sender: FDA-Public Use
  Company Number: 2007UW01910

PATIENT
  Age: 58 Year
  Sex: Male

DRUGS (9)
  1. SEROQUEL [Suspect]
     Dosage: TITRATED TO 300MG
     Route: 048
     Dates: start: 20061220
  2. NAMENDA [Concomitant]
  3. EXELON [Concomitant]
  4. CARB/LEVO [Concomitant]
     Dosage: 25/100MG
  5. NEXIUM [Concomitant]
     Route: 048
  6. NORVASC [Concomitant]
  7. ARICEPT [Concomitant]
  8. AMBIEN CR [Concomitant]
  9. METOCLOPRAMIDE [Concomitant]

REACTIONS (1)
  - TRANSIENT ISCHAEMIC ATTACK [None]
